FAERS Safety Report 8129427-1 (Version None)
Quarter: 2012Q1

REPORT INFORMATION
  Report Type: 
  Country: None (occurrence: None)
  Receive Date: 20120210
  Receipt Date: 20120203
  Transmission Date: 20120608
  Serious: Yes (Death, Hospitalization)
  Sender: FDA-Public Use
  Company Number: DE-GENZYME-CLOF-1001841

PATIENT
  Age: 78 Year
  Sex: Male
  Weight: 83.5 kg

DRUGS (18)
  1. FLUCONAZOLE [Concomitant]
  2. AMBISOME [Concomitant]
     Indication: ANTIBIOTIC THERAPY
     Dosage: UNK
     Route: 042
     Dates: start: 20110928, end: 20111006
  3. LASIX [Concomitant]
     Dosage: UNK
     Route: 042
     Dates: start: 20111011, end: 20111021
  4. EVOLTRA [Suspect]
     Indication: ACUTE MYELOID LEUKAEMIA
     Dosage: 39.4 MG, QD X 5 DAYS
     Route: 040
     Dates: start: 20110915, end: 20110919
  5. CIPROFLOXACIN [Concomitant]
     Indication: INFECTION
     Dosage: UNK
     Route: 048
     Dates: start: 20110908, end: 20110915
  6. CIPROFLOXACIN [Concomitant]
     Indication: ANTIBIOTIC THERAPY
  7. METRONIDAZOLE [Concomitant]
     Indication: INFECTION
     Dosage: UNK
     Route: 048
     Dates: start: 20110921, end: 20111001
  8. MELPERONE [Concomitant]
     Indication: PSYCHOTIC DISORDER
     Dosage: UNK
     Route: 048
     Dates: start: 20111012, end: 20111012
  9. LASIX [Concomitant]
     Dosage: UNK
     Route: 042
     Dates: start: 20111025, end: 20111028
  10. TORSEMIDE [Concomitant]
     Indication: OEDEMA
  11. FLUCONAZOLE [Concomitant]
     Indication: FUNGAL INFECTION
     Dosage: UNK
     Route: 048
     Dates: start: 20110908, end: 20110914
  12. ZIENAM [Concomitant]
     Indication: INFECTION
  13. CYTARABINE [Suspect]
     Indication: ACUTE MYELOID LEUKAEMIA
     Dosage: 39.4 MG, QD X 14 DAYS
     Route: 058
     Dates: start: 20110915, end: 20110928
  14. TORSEMIDE [Concomitant]
     Indication: CARDIAC FAILURE
     Dosage: UNK
     Route: 048
     Dates: end: 20110908
  15. LASIX [Concomitant]
     Indication: HYPERTENSION
     Dosage: UNK
     Route: 042
     Dates: start: 20110908, end: 20110909
  16. ZIENAM [Concomitant]
     Indication: ANTIBIOTIC THERAPY
     Dosage: UNK
     Route: 042
     Dates: start: 20110915, end: 20111001
  17. LASIX [Concomitant]
     Dosage: UNK
     Route: 042
     Dates: start: 20110921, end: 20111008
  18. FUNGIZONE [Concomitant]
     Indication: ANTIFUNGAL PROPHYLAXIS
     Dosage: UNK
     Route: 042
     Dates: start: 20110915, end: 20110928

REACTIONS (8)
  - DYSPNOEA [None]
  - RESPIRATORY FAILURE [None]
  - RENAL FAILURE [None]
  - PNEUMONIA [None]
  - NEPHROPATHY TOXIC [None]
  - SEPSIS [None]
  - DISORIENTATION [None]
  - TOXICITY TO VARIOUS AGENTS [None]
